FAERS Safety Report 21574073 (Version 2)
Quarter: 2022Q4

REPORT INFORMATION
  Report Type: Spontaneous
  Country: US (occurrence: US)
  Receive Date: 20221109
  Receipt Date: 20221230
  Transmission Date: 20230112
  Serious: No
  Sender: FDA-Public Use
  Company Number: US-NEUROCRINE BIOSCIENCES INC.-2022NBI07788

PATIENT

DRUGS (3)
  1. INGREZZA [Suspect]
     Active Substance: VALBENAZINE
     Indication: Tardive dyskinesia
     Dosage: 40 MILLIGRAM, QD
     Route: 048
     Dates: start: 2022
  2. INGREZZA [Suspect]
     Active Substance: VALBENAZINE
     Dosage: 80 MILLIGRAM, QD
     Route: 048
  3. AUSTEDO [Concomitant]
     Active Substance: DEUTETRABENAZINE

REACTIONS (4)
  - Trismus [Unknown]
  - Parkinsonism [Unknown]
  - Muscle spasms [Unknown]
  - Akathisia [Unknown]

NARRATIVE: CASE EVENT DATE: 20220101
